FAERS Safety Report 8099820-4 (Version None)
Quarter: 2012Q1

REPORT INFORMATION
  Report Type: 
  Country: None (occurrence: None)
  Receive Date: 20120129
  Receipt Date: 20111009
  Transmission Date: 20120608
  Serious: No
  Sender: FDA-Public Use
  Company Number: US-ABBOTT-11P-163-0862526-00

PATIENT
  Sex: Female
  Weight: 136.2 kg

DRUGS (11)
  1. GLYPIZIDE [Concomitant]
     Indication: DIABETES MELLITUS
  2. CELEXA [Concomitant]
     Indication: DEPRESSION
  3. HUMIRA [Suspect]
  4. LEVOTHYROXINE SODIUM [Concomitant]
     Indication: HYPOTHYROIDISM
  5. DEMADEX [Concomitant]
     Indication: OEDEMA
  6. MULTI-VITAMINS [Concomitant]
     Indication: SUPPLEMENTATION THERAPY
  7. POTASSIUM [Concomitant]
     Indication: SUPPLEMENTATION THERAPY
  8. PREDNISONE TAB [Suspect]
     Indication: CROHN'S DISEASE
     Dates: end: 20111006
  9. ASACOL [Concomitant]
     Indication: CROHN'S DISEASE
     Dosage: HD, TWO PER DAY
  10. IMODIUM [Concomitant]
     Indication: CROHN'S DISEASE
  11. HUMIRA [Suspect]
     Indication: CROHN'S DISEASE
     Dosage: LOADING DOSE
     Dates: start: 20111004, end: 20111004

REACTIONS (1)
  - BLOOD GLUCOSE INCREASED [None]
